FAERS Safety Report 8205153-5 (Version None)
Quarter: 2012Q1

REPORT INFORMATION
  Report Type: 
  Country: None (occurrence: None)
  Receive Date: 20120313
  Receipt Date: 20120308
  Transmission Date: 20120608
  Serious: Yes (Other)
  Sender: FDA-Public Use
  Company Number: JP-GLAXOSMITHKLINE-B0787587A

PATIENT
  Age: 7 Year

DRUGS (4)
  1. EPINASTINE HYDROCHLORIDE [Concomitant]
     Indication: ASTHMA
     Route: 048
  2. ACETAMINOPHEN [Concomitant]
     Indication: ASTHMA
     Route: 048
  3. FLUTICASONE PROPIONATE [Concomitant]
     Indication: ASTHMA
     Route: 055
  4. RELENZA [Suspect]
     Indication: INFLUENZA
     Dosage: 4IUAX PER DAY
     Route: 055
     Dates: start: 20120305

REACTIONS (2)
  - ABNORMAL BEHAVIOUR [None]
  - HALLUCINATION [None]
